FAERS Safety Report 24720950 (Version 2)
Quarter: 2024Q4

REPORT INFORMATION
  Report Type: Spontaneous
  Country: US (occurrence: US)
  Receive Date: 20241211
  Receipt Date: 20241224
  Transmission Date: 20250115
  Serious: No
  Sender: ROCHE
  Company Number: US-ROCHE-10000148635

PATIENT
  Age: 64 Year
  Sex: Female
  Weight: 54.88 kg

DRUGS (6)
  1. ENSPRYNG [Suspect]
     Active Substance: SATRALIZUMAB-MWGE
     Indication: Autoimmune disorder
     Dosage: START DATE 12-DEC-2024?FREQUENCY: FIRST THREE DOSES ARE AT 0 WEEK, 2 WEEK, AND 4 WEEK AND THEN EVERY
     Route: 058
  2. ENSPRYNG [Suspect]
     Active Substance: SATRALIZUMAB-MWGE
  3. ENSPRYNG [Suspect]
     Active Substance: SATRALIZUMAB-MWGE
  4. RITUXAN [Suspect]
     Active Substance: RITUXIMAB
     Indication: Product used for unknown indication
     Route: 042
     Dates: start: 202308, end: 202405
  5. LANTUS [Concomitant]
     Active Substance: INSULIN GLARGINE
     Indication: Diabetes mellitus
  6. DIABETES [Concomitant]
     Indication: Diabetes mellitus

REACTIONS (8)
  - Fall [Unknown]
  - White blood cell count increased [Unknown]
  - Cognitive disorder [Unknown]
  - Loss of personal independence in daily activities [Unknown]
  - Cervical vertebral fracture [Recovered/Resolved]
  - Mobility decreased [Not Recovered/Not Resolved]
  - Off label use [Unknown]
  - Syringe issue [Unknown]

NARRATIVE: CASE EVENT DATE: 20240201
